FAERS Safety Report 4320636-6 (Version None)
Quarter: 2004Q1

REPORT INFORMATION
  Report Type: 
  Country: None (occurrence: None)
  Receive Date: 20040322
  Receipt Date: 20011003
  Transmission Date: 20041129
  Serious: Yes (Hospitalization, Disabling)
  Sender: FDA-Public Use
  Company Number: US-BRISTOL-MYERS SQUIBB COMPANY-11014289

PATIENT
  Age: 45 Year
  Sex: Male
  Weight: 73 kg

DRUGS (14)
  1. PRAVACHOL [Suspect]
     Dates: start: 19980101, end: 20010901
  2. GLUCOPHAGE [Suspect]
     Dates: end: 20010901
  3. GLUCOVANCE [Suspect]
     Indication: DIABETES MELLITUS
     Route: 048
     Dates: start: 19980101, end: 20010901
  4. PROCHLORPERAZINE [Suspect]
     Route: 048
  5. ACTOS [Concomitant]
     Indication: DIABETES MELLITUS
     Route: 048
  6. AMITRIPTYLINE HCL [Concomitant]
     Route: 048
  7. CEPHALEXIN [Concomitant]
     Route: 048
  8. ERY-TAB [Concomitant]
     Route: 048
  9. GLUCOTROL [Concomitant]
     Route: 048
  10. HYDROCODONE [Concomitant]
     Route: 048
  11. METOCLOPRAMIDE [Concomitant]
     Route: 048
  12. PREVACID [Concomitant]
     Indication: CONSTIPATION
     Route: 048
  13. LIPITOR [Concomitant]
     Indication: BLOOD CHOLESTEROL
     Route: 048
  14. VIOXX [Concomitant]
     Route: 048

REACTIONS (4)
  - ABDOMINAL PAIN [None]
  - CONSTIPATION [None]
  - OEDEMA PERIPHERAL [None]
  - PAIN IN EXTREMITY [None]
